FAERS Safety Report 17976996 (Version 1)
Quarter: 2020Q3

REPORT INFORMATION
  Report Type: Spontaneous
  Country: US (occurrence: US)
  Receive Date: 20200703
  Receipt Date: 20200703
  Transmission Date: 20201103
  Serious: Yes (Other)
  Sender: FDA-Public Use
  Company Number: US-SA-2020SA166821

PATIENT

DRUGS (2)
  1. HUMALOG [Concomitant]
     Active Substance: INSULIN LISPRO
     Indication: BLOOD GLUCOSE INCREASED
     Dosage: UNK
     Route: 065
  2. LANTUS SOLOSTAR [Suspect]
     Active Substance: INSULIN GLARGINE
     Indication: TYPE 2 DIABETES MELLITUS
     Dosage: 16 UNITS IN THE MORNING AND 14 UNITS IN THE EVENING, BID
     Route: 065

REACTIONS (10)
  - Inappropriate schedule of product administration [Unknown]
  - Hypoaesthesia [Unknown]
  - Injection site mass [Unknown]
  - Condition aggravated [Unknown]
  - Neuropathy peripheral [Unknown]
  - Oedema peripheral [Unknown]
  - Musculoskeletal disorder [Unknown]
  - Injection site scar [Unknown]
  - Weight increased [Unknown]
  - Blood glucose increased [Unknown]
